FAERS Safety Report 24736594 (Version 1)
Quarter: 2024Q4

REPORT INFORMATION
  Report Type: Spontaneous
  Country: DE (occurrence: DE)
  Receive Date: 20241216
  Receipt Date: 20241216
  Transmission Date: 20250114
  Serious: Yes (Other)
  Sender: ORGANON
  Company Number: DE-DCGMA-24204395

PATIENT
  Sex: Female
  Weight: 70 kg

DRUGS (1)
  1. SIMVASTATIN [Suspect]
     Active Substance: SIMVASTATIN
     Dosage: 20 MILLIGRAM
     Route: 048

REACTIONS (2)
  - Mouth haemorrhage [Recovered/Resolved]
  - Myalgia [Recovered/Resolved]
